FAERS Safety Report 18283403 (Version 2)
Quarter: 2020Q4

REPORT INFORMATION
  Report Type: Spontaneous
  Country: FR (occurrence: FR)
  Receive Date: 20200918
  Receipt Date: 20201004
  Transmission Date: 20210113
  Serious: Yes (Life-Threatening)
  Sender: FDA-Public Use
  Company Number: FR-TEVA-2020-FR-1828272

PATIENT
  Age: 42 Year
  Sex: Male
  Weight: 76 kg

DRUGS (1)
  1. DOXORUBICINE TEVA 200 MG/100 ML, SOLUTION INJECTABLE [Suspect]
     Active Substance: DOXORUBICIN HYDROCHLORIDE
     Indication: SARCOMA
     Dosage: 75 MG/M2
     Route: 042
     Dates: start: 20200811, end: 20200811

REACTIONS (2)
  - Sepsis [Not Recovered/Not Resolved]
  - Febrile bone marrow aplasia [Not Recovered/Not Resolved]

NARRATIVE: CASE EVENT DATE: 20200817
